FAERS Safety Report 10870106 (Version 1)
Quarter: 2015Q1

REPORT INFORMATION
  Report Type: Report from Study
  Country: GB (occurrence: GB)
  Receive Date: 20150226
  Receipt Date: 20150226
  Transmission Date: 20150721
  Serious: Yes (Death)
  Sender: FDA-Public Use
  Company Number: GB-ROCHE-576639

PATIENT
  Age: 56 Year
  Sex: Male
  Weight: 80 kg

DRUGS (3)
  1. CAPECITABINE. [Suspect]
     Active Substance: CAPECITABINE
     Indication: OESOPHAGEAL ADENOCARCINOMA
     Dosage: DATE OF MOST RECENT DOSE OF ADMINISTRATION 07/APR/2008
     Route: 065
     Dates: start: 20080205
  2. EPIRUBICIN [Suspect]
     Active Substance: EPIRUBICIN
     Indication: OESOPHAGEAL ADENOCARCINOMA
     Dosage: DATE OF MOST RECENT DOSE OF ADMINISTRATION 07/APR/2008
     Route: 065
     Dates: start: 20080204
  3. CISPLATIN. [Suspect]
     Active Substance: CISPLATIN
     Indication: OESOPHAGEAL ADENOCARCINOMA
     Dosage: DATE OF MOST RECENT DOSE OF ADMINISTRATION 07/APR/2008
     Route: 065
     Dates: start: 20080204

REACTIONS (3)
  - Lower respiratory tract infection [Fatal]
  - Multi-organ failure [Fatal]
  - Sepsis [Fatal]

NARRATIVE: CASE EVENT DATE: 20080618
